FAERS Safety Report 12677237 (Version 2)
Quarter: 2017Q3

REPORT INFORMATION
  Report Type: Spontaneous
  Country: US (occurrence: US)
  Receive Date: 20160823
  Receipt Date: 20170823
  Transmission Date: 20171127
  Serious: No
  Sender: FDA-Public Use
  Company Number: US-WEST-WARD PHARMACEUTICALS CORP.-US-H14001-16-01345

PATIENT
  Sex: Male

DRUGS (3)
  1. HALDOL DECANOATE [Concomitant]
     Active Substance: HALOPERIDOL DECANOATE
     Indication: MENTAL DISORDER
     Route: 030
     Dates: start: 2013, end: 2013
  2. HALDOL [Concomitant]
     Active Substance: HALOPERIDOL
     Indication: MENTAL DISORDER
     Route: 030
  3. ATIVAN [Suspect]
     Active Substance: LORAZEPAM
     Indication: MENTAL DISORDER
     Route: 030
     Dates: start: 2013, end: 2013

REACTIONS (1)
  - Drug ineffective [Recovered/Resolved]

NARRATIVE: CASE EVENT DATE: 2013
